FAERS Safety Report 14003177 (Version 1)
Quarter: 2017Q3

REPORT INFORMATION
  Report Type: Spontaneous
  Country: US (occurrence: US)
  Receive Date: 20170922
  Receipt Date: 20170922
  Transmission Date: 20171128
  Serious: Yes (Other)
  Sender: FDA-Public Use
  Company Number: US-009507513-1709USA009834

PATIENT
  Sex: Female

DRUGS (1)
  1. KEYTRUDA [Suspect]
     Active Substance: PEMBROLIZUMAB
     Indication: NON-SMALL CELL LUNG CANCER
     Dosage: 200 MG ONCE EVERY 3 WEEKS, 30 MINUTE INTRAVENOUS INFUSION
     Route: 041

REACTIONS (2)
  - Pruritus [Unknown]
  - Stevens-Johnson syndrome [Unknown]
